FAERS Safety Report 20076782 (Version 2)
Quarter: 2021Q4

REPORT INFORMATION
  Report Type: Spontaneous
  Country: TH (occurrence: TH)
  Receive Date: 20211116
  Receipt Date: 20211201
  Transmission Date: 20220303
  Serious: Yes (Death, Other)
  Sender: FDA-Public Use
  Company Number: TH-009507513-2111THA004548

PATIENT
  Age: 28 Year
  Sex: Male

DRUGS (1)
  1. KEYTRUDA [Suspect]
     Active Substance: PEMBROLIZUMAB
     Dosage: 200 MG EVERY THREE WEEKS
     Route: 042
     Dates: start: 20211107, end: 20211107

REACTIONS (1)
  - Death [Fatal]

NARRATIVE: CASE EVENT DATE: 20211111
